FAERS Safety Report 6750563-6 (Version None)
Quarter: 2010Q2

REPORT INFORMATION
  Report Type: 
  Country: None (occurrence: None)
  Receive Date: 20100528
  Receipt Date: 20100528
  Transmission Date: 20101027
  Serious: Yes (Other)
  Sender: FDA-Public Use
  Company Number: None

PATIENT
  Sex: Female
  Weight: 70 kg

DRUGS (2)
  1. TOPIRAMATE [Suspect]
     Indication: EPILEPSY
     Dosage: 200 MG BID PO
     Route: 048
     Dates: start: 20000124
  2. TOPIRAMATE [Suspect]
     Indication: MIGRAINE
     Dosage: 200 MG BID PO
     Route: 048
     Dates: start: 20000124

REACTIONS (3)
  - CONVULSION [None]
  - HEADACHE [None]
  - PRODUCT SUBSTITUTION ISSUE [None]
